FAERS Safety Report 14110307 (Version 1)
Quarter: 2017Q4

REPORT INFORMATION
  Report Type: Spontaneous
  Country: US (occurrence: US)
  Receive Date: 20171020
  Receipt Date: 20171020
  Transmission Date: 20180321
  Serious: No
  Sender: FDA-Public Use
  Company Number: US-PFIZER INC-2017453059

PATIENT
  Age: 49 Year
  Sex: Female
  Weight: 63.96 kg

DRUGS (2)
  1. PREMARIN [Suspect]
     Active Substance: ESTROGENS, CONJUGATED
     Indication: HORMONE THERAPY
     Dosage: INSERT 0.5 GM INTO VAGINA DAILY FOR TWO WEEKS AND THEN TWO TIMES PER WEEK
     Route: 067
     Dates: start: 20171012, end: 20171012
  2. PREMARIN [Suspect]
     Active Substance: ESTROGENS, CONJUGATED
     Indication: SEXUAL DYSFUNCTION

REACTIONS (9)
  - Erythema [Recovering/Resolving]
  - Vaginal odour [Recovering/Resolving]
  - Product use issue [Unknown]
  - Fungal infection [Recovering/Resolving]
  - Vaginal discharge [Recovering/Resolving]
  - Irritability [Recovering/Resolving]
  - Vulvovaginal pruritus [Recovering/Resolving]
  - Vulvovaginal discomfort [Recovering/Resolving]
  - Discomfort [Recovering/Resolving]
